FAERS Safety Report 9372009 (Version 2)
Quarter: 2013Q3

REPORT INFORMATION
  Report Type: Spontaneous
  Country: JP (occurrence: JP)
  Receive Date: 20130627
  Receipt Date: 20130731
  Transmission Date: 20140515
  Serious: Yes (Hospitalization, Other)
  Sender: FDA-Public Use
  Company Number: JP-PFIZER INC-2013084901

PATIENT
  Age: 65 Year
  Sex: Male
  Weight: 64 kg

DRUGS (20)
  1. LYRICA [Suspect]
     Indication: HYPOAESTHESIA
     Dosage: 100 MG DAILY (MORNING: 25 MG, AFTERNOON: 25 MG, BEFORE BEDTIME: 50 MG)
     Route: 048
     Dates: start: 20120124, end: 20120314
  2. LYRICA [Suspect]
     Indication: PAIN
     Dosage: 150 MG DAILY (MORNING: 25MG, AFTERNOON: 25 MG, EVENING: 25 MG, BEFORE BEDTIME: 75 MG)
     Route: 048
     Dates: start: 20120314, end: 20130315
  3. LYRICA [Suspect]
     Dosage: 75 MG DAILY, BEFORE BEDTIME
     Route: 048
     Dates: start: 20130315
  4. TRAMCET [Suspect]
     Indication: MUSCULOSKELETAL PAIN
     Dosage: 1 DF, 4X/DAY
     Route: 048
     Dates: start: 20130208, end: 20130407
  5. TAMSULOSIN [Concomitant]
     Dosage: 1 CAPSULE/DAY
     Route: 048
  6. BAYASPIRIN [Concomitant]
     Indication: CEREBRAL INFARCTION
     Dosage: 100 MG, 1X/DAY
     Route: 048
     Dates: start: 20110414
  7. PLAVIX [Concomitant]
     Indication: CEREBRAL INFARCTION
     Dosage: 75 MG, 1X/DAY
     Route: 048
     Dates: start: 20110414
  8. PARIET [Concomitant]
     Dosage: 10 MG, 1X/DAY
     Route: 048
  9. MICARDIS [Concomitant]
     Indication: HYPERTENSION
     Dosage: 40 MG, 1X/DAY
     Route: 048
     Dates: start: 20130208
  10. NATRIX [Concomitant]
     Indication: HYPERTENSION
     Dosage: 40 MG, 1X/DAY
     Route: 048
     Dates: start: 20130208
  11. AMLODIPINE [Concomitant]
     Indication: HYPERTENSION
     Dosage: 5 MG, 2X/DAY
     Route: 048
     Dates: start: 20110414
  12. TOFRANIL [Concomitant]
     Indication: HYPOAESTHESIA
     Dosage: 10 MG, 3X/DAY
     Route: 048
     Dates: start: 20120821
  13. TOFRANIL [Concomitant]
     Indication: PAIN
  14. RIVOTRIL [Concomitant]
     Indication: HYPOAESTHESIA
     Dosage: 1 MG DAILY BEFORE BEDTIME
     Route: 048
     Dates: start: 20111213
  15. RIVOTRIL [Concomitant]
     Indication: PAIN
  16. SULPIRIDE [Concomitant]
     Indication: HYPOAESTHESIA
     Dosage: 50 MG, 2X/DAY
     Route: 048
     Dates: start: 20120314
  17. SULPIRIDE [Concomitant]
     Indication: PAIN
  18. LOXONIN [Concomitant]
     Indication: MUSCULOSKELETAL PAIN
     Dosage: 60 MG, 2X/DAY
     Route: 048
     Dates: start: 20111213, end: 20130208
  19. BLOPRESS [Concomitant]
     Indication: HYPERTENSION
     Dosage: 8 MG, 1X/DAY
     Route: 048
     Dates: start: 20110414, end: 20130208
  20. FLUITRAN [Concomitant]
     Indication: HYPERTENSION
     Dosage: 1 MG, 1X/DAY
     Route: 048
     Dates: start: 20110414, end: 20130208

REACTIONS (9)
  - Diplopia [Recovered/Resolved]
  - Dysstasia [Recovered/Resolved]
  - Gait disturbance [Recovered/Resolved]
  - Coronary artery stenosis [Unknown]
  - Angina unstable [Unknown]
  - Renal impairment [Unknown]
  - Pneumonia [Recovered/Resolved]
  - Nystagmus [Unknown]
  - Somnolence [Unknown]
